FAERS Safety Report 16774619 (Version 1)
Quarter: 2019Q3

REPORT INFORMATION
  Report Type: Spontaneous
  Country: US (occurrence: US)
  Receive Date: 20190905
  Receipt Date: 20190905
  Transmission Date: 20191005
  Serious: Yes (Other)
  Sender: FDA-Public Use
  Company Number: US-TEVA-2019-US-1104231

PATIENT

DRUGS (1)
  1. AJOVY [Suspect]
     Active Substance: FREMANEZUMAB-VFRM
     Route: 065

REACTIONS (12)
  - Slow speech [Recovering/Resolving]
  - Gait disturbance [Recovering/Resolving]
  - Vertigo [Recovering/Resolving]
  - Neuralgia [Recovering/Resolving]
  - Hemiparesis [Unknown]
  - Hypoaesthesia [Unknown]
  - Dysphemia [Recovering/Resolving]
  - Mood altered [Recovering/Resolving]
  - Balance disorder [Recovering/Resolving]
  - Amnesia [Recovering/Resolving]
  - Muscle spasms [Recovering/Resolving]
  - Cognitive disorder [Recovering/Resolving]
